FAERS Safety Report 9070389 (Version 1)
Quarter: 2013Q1

REPORT INFORMATION
  Report Type: Report from Study
  Country: US (occurrence: US)
  Receive Date: 20130129
  Receipt Date: 20130129
  Transmission Date: 20140127
  Serious: No
  Sender: FDA-Public Use
  Company Number: US-ABBOTT-12P-163-0921157-00

PATIENT
  Age: 54 None
  Sex: Female

DRUGS (4)
  1. HUMIRA 40 MG/ 0.8 ML PRE-FILLED SYRINGE [Suspect]
     Indication: PSORIASIS
     Dosage: JUST SINGLE INJECTION, NOT LOADING DOSE.
     Route: 058
     Dates: start: 20120307, end: 20120307
  2. MULTIVITAMIN [Concomitant]
     Indication: VITAMIN SUPPLEMENTATION
  3. UNKNOWN BETA BLOCKER [Concomitant]
     Indication: ATRIAL FIBRILLATION
     Dosage: NOT REPORTED
  4. ASPIRIN [Concomitant]
     Indication: PRODUCT USED FOR UNKNOWN INDICATION

REACTIONS (4)
  - Rash erythematous [Recovered/Resolved]
  - Skin burning sensation [Recovered/Resolved]
  - Drug eruption [Recovered/Resolved]
  - Rash macular [Recovered/Resolved]
